FAERS Safety Report 19618288 (Version 3)
Quarter: 2021Q3

REPORT INFORMATION
  Report Type: Report from Study
  Country: US (occurrence: US)
  Receive Date: 20210728
  Receipt Date: 20210812
  Transmission Date: 20211014
  Serious: Yes (Hospitalization, Other)
  Sender: FDA-Public Use
  Company Number: CA-SA-2021SA245900

PATIENT
  Age: 40 Year
  Sex: Female

DRUGS (4)
  1. ALEMTUZUMAB [Suspect]
     Active Substance: ALEMTUZUMAB
     Indication: MULTIPLE SCLEROSIS
     Dosage: 12 MG, QD
     Route: 042
     Dates: start: 20210723, end: 20210723
  2. DEXAMETHASONE. [Concomitant]
     Active Substance: DEXAMETHASONE
     Dosage: 40MG IV 7/22, 7/23 AND 7/24
  3. RITUXAN [Concomitant]
     Active Substance: RITUXIMAB
  4. PREDNISONE. [Concomitant]
     Active Substance: PREDNISONE

REACTIONS (7)
  - Splenomegaly [Unknown]
  - Petechiae [Unknown]
  - Contusion [Unknown]
  - Contusion [Unknown]
  - Platelet count decreased [Unknown]
  - Thrombosis [Unknown]
  - Heavy menstrual bleeding [Unknown]

NARRATIVE: CASE EVENT DATE: 202107
